FAERS Safety Report 9030316 (Version 1)
Quarter: 2013Q1

REPORT INFORMATION
  Report Type: Spontaneous
  Country: JP (occurrence: JP)
  Receive Date: 20130122
  Receipt Date: 20130122
  Transmission Date: 20140127
  Serious: Yes (Other)
  Sender: FDA-Public Use
  Company Number: JP-PFIZER INC-2013006848

PATIENT
  Age: 65 Year
  Sex: Male

DRUGS (3)
  1. CELECOX [Suspect]
     Indication: ANALGESIC THERAPY
     Dosage: 400 MG, DAILY
     Route: 048
     Dates: start: 20121027, end: 20121106
  2. LYRICA [Suspect]
     Indication: HERPES ZOSTER
     Dosage: 150 MG, DAILY
     Route: 048
  3. VALTREX [Suspect]
     Indication: HERPES ZOSTER
     Dosage: 3000 MG, DAILY
     Route: 048

REACTIONS (1)
  - Drug eruption [Recovered/Resolved]
